FAERS Safety Report 6590959-9 (Version None)
Quarter: 2010Q1

REPORT INFORMATION
  Report Type: 
  Country: None (occurrence: None)
  Receive Date: 20100219
  Receipt Date: 20100209
  Transmission Date: 20100710
  Serious: Yes (Other)
  Sender: FDA-Public Use
  Company Number: CA-JNJFOC-20100205227

PATIENT
  Sex: Female
  Weight: 66 kg

DRUGS (9)
  1. GOLIMUMAB [Suspect]
     Indication: RHEUMATOID ARTHRITIS
     Route: 058
  2. GOLIMUMAB [Suspect]
     Route: 058
  3. PREMARIN [Concomitant]
     Route: 048
  4. MEDROXYPROGESTERONE [Concomitant]
     Route: 048
  5. VITAMIN D [Concomitant]
     Route: 048
  6. ALTACE [Concomitant]
     Route: 048
  7. PANTOPRAZOLE [Concomitant]
     Route: 048
  8. CARBAMAZEPINE SLOW RELEASE [Concomitant]
     Route: 048
  9. HYDROCHLOROTHIAZIDE [Concomitant]
     Route: 048

REACTIONS (1)
  - BREAST CANCER [None]
